FAERS Safety Report 6103581-5 (Version None)
Quarter: 2009Q1

REPORT INFORMATION
  Report Type: 
  Country: None (occurrence: None)
  Receive Date: 20090305
  Receipt Date: 20090224
  Transmission Date: 20090719
  Serious: Yes (Death, Hospitalization)
  Sender: FDA-Public Use
  Company Number: US-ROCHE-612775

PATIENT
  Sex: Male
  Weight: 53.1 kg

DRUGS (5)
  1. CAPECITABINE [Suspect]
     Indication: METASTATIC GASTRIC CANCER
     Dosage: STRENGTH REPORTED AS 1700MG/M2 PER DAY X14 DAYS Q3WKS
     Route: 048
     Dates: end: 20090129
  2. BEVACIZUMAB [Suspect]
     Indication: METASTATIC GASTRIC CANCER
     Route: 042
     Dates: end: 20090127
  3. OXALIPLATIN [Suspect]
     Indication: METASTATIC GASTRIC CANCER
     Route: 042
     Dates: end: 20090127
  4. MS CONTIN [Concomitant]
     Dosage: FREQUENCY REPORTED AS Q6HRS PRN
     Dates: start: 20090127
  5. TYLENOL W/ CODEINE NO. 3 [Concomitant]
     Dosage: FREQUENCY REPORTED AS Q1HRS PRN.
     Dates: start: 20081101

REACTIONS (5)
  - ABDOMINAL PAIN [None]
  - ANOREXIA [None]
  - DISEASE PROGRESSION [None]
  - NAUSEA [None]
  - WEIGHT DECREASED [None]
